FAERS Safety Report 5416062-9 (Version None)
Quarter: 2007Q3

REPORT INFORMATION
  Report Type: 
  Country: None (occurrence: None)
  Receive Date: 20070815
  Receipt Date: 20070810
  Transmission Date: 20080115
  Serious: Yes (Hospitalization)
  Sender: FDA-Public Use
  Company Number: CH-MERCK-0708CHE00011

PATIENT
  Age: 57 Year
  Sex: Female

DRUGS (9)
  1. MODURETIC 5-50 [Suspect]
     Route: 048
     Dates: end: 20070423
  2. METFORMIN [Suspect]
     Route: 048
     Dates: end: 20070423
  3. FUROSEMIDE [Suspect]
     Route: 048
  4. GLIMEPIRIDE [Concomitant]
     Route: 048
  5. ESOMEPRAZOLE MAGNESIUM [Concomitant]
     Route: 048
  6. LEVOTHYROXINE SODIUM [Concomitant]
     Route: 048
  7. VENLAFAXINE HYDROCHLORIDE [Concomitant]
     Route: 048
  8. FLUPENTIXOL HYDROCHLORIDE AND MELITRACEN HYDROCHLORIDE [Concomitant]
     Route: 048
  9. CYANOCOBALAMIN [Concomitant]
     Route: 030

REACTIONS (3)
  - LACTIC ACIDOSIS [None]
  - OVERDOSE [None]
  - RENAL FAILURE CHRONIC [None]
